FAERS Safety Report 12914585 (Version 1)
Quarter: 2016Q4

REPORT INFORMATION
  Report Type: Spontaneous
  Country: US (occurrence: US)
  Receive Date: 20161106
  Receipt Date: 20161106
  Transmission Date: 20170207
  Serious: No
  Sender: FDA-Public Use
  Company Number: US-RELYPSA-RLY2016001882

PATIENT
  Age: 82 Year
  Sex: Female

DRUGS (10)
  1. GLIPIZIDE. [Concomitant]
     Active Substance: GLIPIZIDE
  2. MVI [Concomitant]
     Active Substance: VITAMINS
  3. GABAPENTIN. [Concomitant]
     Active Substance: GABAPENTIN
  4. DOCUSATE [Concomitant]
     Active Substance: DOCUSATE
  5. ASPIRIN. [Concomitant]
     Active Substance: ASPIRIN
  6. LIDODERM [Concomitant]
     Active Substance: LIDOCAINE
  7. SIMVASTATIN. [Concomitant]
     Active Substance: SIMVASTATIN
  8. VELTASSA [Suspect]
     Active Substance: PATIROMER
     Indication: PRODUCT USED FOR UNKNOWN INDICATION
     Dosage: 8.4 G, QD
     Route: 048
     Dates: start: 201608
  9. SENNA LAXATIVE [Concomitant]
     Active Substance: SENNOSIDES
  10. PEG [Concomitant]
     Active Substance: POLYETHYLENE GLYCOLS

REACTIONS (1)
  - Diarrhoea [Recovering/Resolving]

NARRATIVE: CASE EVENT DATE: 201608
